FAERS Safety Report 8179764-X (Version None)
Quarter: 2012Q1

REPORT INFORMATION
  Report Type: 
  Country: None (occurrence: None)
  Receive Date: 20120302
  Receipt Date: 20120222
  Transmission Date: 20120608
  Serious: Yes (Hospitalization)
  Sender: FDA-Public Use
  Company Number: JP-JNJFOC-20120214658

PATIENT
  Sex: Male

DRUGS (4)
  1. LOBU [Suspect]
     Indication: PYREXIA
     Route: 048
     Dates: start: 20111231, end: 20120103
  2. ONON [Concomitant]
     Route: 065
  3. LANSOPRAZOLE [Concomitant]
     Route: 065
  4. LEVOFLOXACIN [Suspect]
     Indication: PYREXIA
     Route: 048
     Dates: start: 20111231, end: 20120103

REACTIONS (4)
  - APRAXIA [None]
  - PARTIAL SEIZURES [None]
  - ENCEPHALOPATHY [None]
  - APHASIA [None]
